FAERS Safety Report 14189034 (Version 1)
Quarter: 2017Q4

REPORT INFORMATION
  Report Type: Report from Study
  Country: US (occurrence: US)
  Receive Date: 20171115
  Receipt Date: 20171115
  Transmission Date: 20180321
  Serious: Yes (Other)
  Sender: FDA-Public Use
  Company Number: US-ROCHE-1947016

PATIENT

DRUGS (3)
  1. PREDNISONE. [Concomitant]
     Active Substance: PREDNISONE
     Indication: IMMUNOSUPPRESSION
     Route: 065
  2. MYCOPHENOLATE MOFETIL. [Suspect]
     Active Substance: MYCOPHENOLATE MOFETIL
     Indication: IMMUNOSUPPRESSION
     Route: 048
  3. TACROLIMUS. [Suspect]
     Active Substance: TACROLIMUS
     Indication: IMMUNOSUPPRESSION
     Route: 048

REACTIONS (20)
  - Wound infection [Unknown]
  - Gastrointestinal toxicity [Unknown]
  - Abdominal infection [Unknown]
  - Nausea [Unknown]
  - Hyperglycaemia [Unknown]
  - Cellulitis [Unknown]
  - Epididymitis [Unknown]
  - Brain abscess [Unknown]
  - Urinary tract infection [Unknown]
  - Diarrhoea [Unknown]
  - Neurotoxicity [Unknown]
  - Anaemia [Unknown]
  - Vomiting [Unknown]
  - Lymphoproliferative disorder [Unknown]
  - Infection [Unknown]
  - Cytomegalovirus infection [Unknown]
  - Bone marrow toxicity [Unknown]
  - Pneumonia [Unknown]
  - Encephalitis [Unknown]
  - Blood creatinine increased [Unknown]
